FAERS Safety Report 10311002 (Version 1)
Quarter: 2014Q3

REPORT INFORMATION
  Report Type: Spontaneous
  Country: US (occurrence: US)
  Receive Date: 20140717
  Receipt Date: 20140717
  Transmission Date: 20150326
  Serious: No
  Sender: FDA-Public Use
  Company Number: US-ASTRAZENECA-2014SE49036

PATIENT
  Age: 69 Year
  Sex: Male

DRUGS (1)
  1. SEROQUEL XR [Suspect]
     Active Substance: QUETIAPINE FUMARATE
     Dosage: UNKNOWN HS
     Route: 048
     Dates: start: 20140624

REACTIONS (3)
  - Somnolence [Unknown]
  - Fatigue [Unknown]
  - Intentional product misuse [Unknown]
